FAERS Safety Report 25846449 (Version 1)
Quarter: 2025Q3

REPORT INFORMATION
  Report Type: Spontaneous
  Country: CN (occurrence: CN)
  Receive Date: 20250925
  Receipt Date: 20250925
  Transmission Date: 20251020
  Serious: Yes (Hospitalization, Other)
  Sender: PFIZER
  Company Number: CN-PFIZER INC-PV202500113966

PATIENT
  Age: 21 Year
  Sex: Male
  Weight: 62.7 kg

DRUGS (2)
  1. CYTARABINE [Suspect]
     Active Substance: CYTARABINE
     Indication: Acute myeloid leukaemia
     Dosage: 3.6 G, 1X/DAY (ALSO REPORTED AS 3.6G Q12H D1-3)
     Route: 041
     Dates: start: 20250719, end: 20250721
  2. AVAPRITINIB [Concomitant]
     Active Substance: AVAPRITINIB
     Indication: Acute myeloid leukaemia
     Dosage: 100 MG, 1X/DAY (QD)
     Dates: start: 20250719

REACTIONS (4)
  - Agranulocytosis [Recovering/Resolving]
  - Myelosuppression [Recovering/Resolving]
  - Immunodeficiency [Recovering/Resolving]
  - Pyrexia [Unknown]

NARRATIVE: CASE EVENT DATE: 20250725
